FAERS Safety Report 6933349-9 (Version None)
Quarter: 2010Q3

REPORT INFORMATION
  Report Type: 
  Country: None (occurrence: None)
  Receive Date: 20100818
  Receipt Date: 20100818
  Transmission Date: 20110219
  Serious: Yes (Other)
  Sender: FDA-Public Use
  Company Number: None

PATIENT
  Age: 27 Year
  Sex: Female
  Weight: 68.0396 kg

DRUGS (1)
  1. BISACODYL [Suspect]
     Indication: COLONOSCOPY
     Dosage: 5 MG. 1X 047 - ORAL/PILL
     Route: 048
     Dates: start: 20100701

REACTIONS (5)
  - CHILLS [None]
  - DIARRHOEA [None]
  - GAIT DISTURBANCE [None]
  - HYPERHIDROSIS [None]
  - MALAISE [None]
